FAERS Safety Report 11363773 (Version 1)
Quarter: 2015Q3

REPORT INFORMATION
  Report Type: Other
  Country: GB (occurrence: GB)
  Receive Date: 20150811
  Receipt Date: 20150811
  Transmission Date: 20151125
  Serious: Yes (Other)
  Sender: FDA-Public Use
  Company Number: GB-LUPIN PHARMACEUTICALS INC.-E2B_00003989

PATIENT
  Age: 57 Year
  Sex: Male
  Weight: 95.25 kg

DRUGS (5)
  1. AMLODIPINE [Interacting]
     Active Substance: AMLODIPINE BESYLATE
     Route: 048
  2. SIMVASTATIN. [Interacting]
     Active Substance: SIMVASTATIN
     Route: 065
  3. AMLODIPINE [Interacting]
     Active Substance: AMLODIPINE BESYLATE
     Indication: HYPERTENSION
     Route: 048
  4. RAMIPRIL. [Concomitant]
     Active Substance: RAMIPRIL
     Indication: HYPERTENSION
     Route: 065
  5. SIMVASTATIN. [Suspect]
     Active Substance: SIMVASTATIN
     Indication: BLOOD CHOLESTEROL INCREASED
     Route: 048

REACTIONS (3)
  - Extrasystoles [Not Recovered/Not Resolved]
  - Cardiomyopathy [Unknown]
  - Drug interaction [Unknown]
